FAERS Safety Report 4353616-5 (Version None)
Quarter: 2004Q2

REPORT INFORMATION
  Report Type: 
  Country: None (occurrence: None)
  Receive Date: 20040430
  Receipt Date: 20040416
  Transmission Date: 20050107
  Serious: Yes (Hospitalization)
  Sender: FDA-Public Use
  Company Number: 2004IM000581

PATIENT
  Age: 69 Year
  Sex: Female

DRUGS (6)
  1. ADVAFERON (A643_INTERFERON ALFACON-1) [Suspect]
     Indication: HEPATIC CIRRHOSIS
     Dosage: 12 MU; QD; SUBCUTANEOUS
     Route: 058
     Dates: start: 20040202, end: 20040405
  2. LOSARTAN POTASSIUM [Concomitant]
  3. SPIRONOLACTONE [Concomitant]
  4. DOMPERIDONE [Concomitant]
  5. SYAKUYAKUKANZOTO [Concomitant]
  6. KANAMYCIN [Concomitant]

REACTIONS (6)
  - ABDOMINAL DISTENSION [None]
  - AMMONIA INCREASED [None]
  - ASCITES [None]
  - GENERALISED OEDEMA [None]
  - MALAISE [None]
  - WEIGHT INCREASED [None]
